FAERS Safety Report 9379939 (Version 1)
Quarter: 2013Q3

REPORT INFORMATION
  Report Type: Spontaneous
  Country: US (occurrence: US)
  Receive Date: 20130702
  Receipt Date: 20130702
  Transmission Date: 20140515
  Serious: No
  Sender: FDA-Public Use
  Company Number: US-ASTRAZENECA-2013SE41351

PATIENT
  Age: 20 Year
  Sex: Male
  Weight: 81.6 kg

DRUGS (1)
  1. SEROQUEL XR [Suspect]
     Indication: MENTAL DISORDER
     Route: 048
     Dates: start: 2009

REACTIONS (9)
  - Vitamin D deficiency [Unknown]
  - Alcohol use [Unknown]
  - Activities of daily living impaired [Unknown]
  - Somnolence [Unknown]
  - Weight increased [Unknown]
  - Irritability [Unknown]
  - Somnolence [Unknown]
  - Lethargy [Unknown]
  - Off label use [Unknown]
